FAERS Safety Report 11453250 (Version 1)
Quarter: 2015Q3

REPORT INFORMATION
  Report Type: Spontaneous
  Country: US (occurrence: US)
  Receive Date: 20150903
  Receipt Date: 20150903
  Transmission Date: 20151125
  Serious: No
  Sender: FDA-Public Use
  Company Number: US-PFIZER INC-2015280712

PATIENT
  Age: 66 Year
  Sex: Female
  Weight: 80 kg

DRUGS (1)
  1. IBRANCE [Suspect]
     Active Substance: PALBOCICLIB
     Indication: BREAST CANCER
     Dosage: 75 MG, UNK (DAY 1-21 Q 28 DAYS)
     Route: 048
     Dates: start: 20150509

REACTIONS (3)
  - Haemoglobin decreased [Unknown]
  - Blood test abnormal [Unknown]
  - Alopecia [Unknown]
